FAERS Safety Report 7458123-9 (Version None)
Quarter: 2011Q2

REPORT INFORMATION
  Report Type: 
  Country: None (occurrence: None)
  Receive Date: 20110504
  Receipt Date: 20110429
  Transmission Date: 20111010
  Serious: Yes (Death)
  Sender: FDA-Public Use
  Company Number: US-PFIZER INC-2011092447

PATIENT
  Age: 73 Year
  Sex: Male
  Weight: 66.6 kg

DRUGS (4)
  1. MYLOTARG [Suspect]
     Indication: ACUTE MYELOID LEUKAEMIA
     Dosage: 3MG/M2, ON DAY 8 CYCLE 1
     Route: 042
     Dates: start: 20110401, end: 20110401
  2. AZACITIDINE [Suspect]
     Indication: ACUTE MYELOID LEUKAEMIA
     Dosage: 75MG/M2 (126.8 MG), CYCLE 1 DAYS 1 THROUGH 7
     Dates: start: 20110325, end: 20110331
  3. MYLOTARG [Suspect]
     Dosage: 3MG/M2 ON DAY 8 CYCLE 2 RECEIVED 42.6ML OF 100ML
     Route: 041
     Dates: start: 20110418, end: 20110418
  4. AZACITIDINE [Suspect]
     Dosage: 75 MG/M2 (127 MG), CYCLE 2 DAYS 1 THROUGH 7
     Dates: start: 20110411, end: 20110417

REACTIONS (1)
  - SUDDEN DEATH [None]
